FAERS Safety Report 14107217 (Version 2)
Quarter: 2017Q4

REPORT INFORMATION
  Report Type: Other
  Country: AU (occurrence: AU)
  Receive Date: 20171019
  Receipt Date: 20171027
  Transmission Date: 20180321
  Serious: Yes (Hospitalization, Other)
  Sender: FDA-Public Use
  Company Number: AU-ASCEND THERAPEUTICS-2030694

PATIENT
  Age: 48 Year
  Sex: Female

DRUGS (4)
  1. PROGESTERONE. [Suspect]
     Active Substance: PROGESTERONE
     Route: 065
  2. ESTROGEL [Suspect]
     Active Substance: ESTRADIOL
     Indication: HORMONE THERAPY
     Route: 065
  3. DIAZEPAM. [Suspect]
     Active Substance: DIAZEPAM
     Route: 065
  4. SSRI [Suspect]
     Active Substance: UNSPECIFIED INGREDIENT
     Route: 065

REACTIONS (7)
  - Pulmonary embolism [Unknown]
  - Chest pain [Unknown]
  - Ventricular dysfunction [Unknown]
  - Fatigue [Unknown]
  - Pulmonary hypertension [Unknown]
  - Life expectancy shortened [Unknown]
  - Anxiety [Unknown]
